FAERS Safety Report 8992723 (Version 5)
Quarter: 2013Q2

REPORT INFORMATION
  Report Type: Report from Study
  Country: FR (occurrence: FR)
  Receive Date: 20130101
  Receipt Date: 20130422
  Transmission Date: 20140414
  Serious: Yes (Hospitalization)
  Sender: FDA-Public Use
  Company Number: FR-ROCHE-1172538

PATIENT
  Age: 79 Year
  Sex: Female

DRUGS (33)
  1. TRASTUZUMAB [Suspect]
     Indication: BREAST CANCER
     Dosage: DATE OF LAST DOSE PRIOR TO SAE: 26/NOV/2012
     Route: 065
     Dates: start: 20120612, end: 20121218
  2. PERTUZUMAB [Suspect]
     Indication: BREAST CANCER
     Dosage: DATE OF LAST DOSE PRIOR TO SAE: 27/NOV/2012
     Route: 065
     Dates: start: 20120612, end: 20121218
  3. PACLITAXEL [Suspect]
     Indication: BREAST CANCER
     Dosage: DATE OF LAST DOSE PRIOR TO SAE- 10/JUL/2012
     Route: 065
     Dates: start: 20120613
  4. DEXAMETHASONE [Concomitant]
     Route: 065
     Dates: start: 20120613, end: 20120710
  5. POLARAMINE [Concomitant]
     Indication: HYPERSENSITIVITY
     Route: 065
     Dates: start: 20120613, end: 20120710
  6. AZANTAC [Concomitant]
     Route: 065
     Dates: start: 20120613, end: 20120710
  7. ONDANSETRON [Concomitant]
     Indication: NAUSEA
     Route: 065
     Dates: start: 20120613, end: 20120710
  8. CARDENSIEL [Concomitant]
     Route: 065
     Dates: start: 200001
  9. COZAAR [Concomitant]
     Route: 065
     Dates: start: 200001
  10. LYRICA [Concomitant]
     Route: 065
     Dates: start: 20120509
  11. OROCAL D3 [Concomitant]
     Route: 065
     Dates: start: 200801, end: 20120924
  12. PARACETAMOL [Concomitant]
     Route: 065
     Dates: start: 20120509, end: 20120710
  13. PREVISCAN [Concomitant]
     Dosage: DAILY
     Route: 065
     Dates: start: 200801
  14. LOPERAMIDE [Concomitant]
     Route: 065
     Dates: start: 20120622
  15. OMEPRAZOLE [Concomitant]
     Indication: PROPHYLAXIS AGAINST GASTROINTESTINAL ULCER
     Route: 065
     Dates: start: 20120509
  16. IXPRIM [Concomitant]
     Dosage: 6 TABLETS PER DAY
     Route: 065
     Dates: start: 201001
  17. SERESTA [Concomitant]
     Route: 065
     Dates: start: 20120615
  18. MACROGOL [Concomitant]
     Route: 065
     Dates: start: 20120615, end: 20120615
  19. PROCTOLOG [Concomitant]
     Dosage: 2 APPLICATION
     Route: 065
     Dates: start: 20120605, end: 20120612
  20. TRAMADOL HCL [Concomitant]
     Route: 065
     Dates: start: 20120719, end: 20121210
  21. TRAMADOL HCL [Concomitant]
     Route: 065
     Dates: start: 20121211
  22. NOROXINE [Concomitant]
     Route: 065
     Dates: start: 20120711, end: 20120721
  23. ZOMETA [Concomitant]
     Route: 065
     Dates: start: 20120710, end: 20120831
  24. BURINEX [Concomitant]
     Route: 065
     Dates: start: 20120813
  25. FORTIMEL [Concomitant]
     Dosage: 1 BOTTLE DAILY
     Route: 065
     Dates: start: 20120924
  26. ZYMAD [Concomitant]
     Dosage: 1 PHIAL DAILY
     Route: 065
     Dates: start: 20120924
  27. CALCIUM SANDOZ [Concomitant]
     Route: 065
     Dates: start: 20120924
  28. SOLUPRED (FRANCE) [Concomitant]
     Route: 065
     Dates: start: 20121114, end: 20121120
  29. SOLUPRED (FRANCE) [Concomitant]
     Route: 065
     Dates: start: 20121121, end: 20121127
  30. SOLUPRED (FRANCE) [Concomitant]
     Dosage: DAILY
     Route: 065
     Dates: start: 20121128
  31. AUGMENTIN [Concomitant]
     Dosage: 3 POCKETS DAILY
     Route: 065
     Dates: start: 20121114, end: 20121121
  32. ULTRALEVURE [Concomitant]
     Route: 065
     Dates: start: 20121113, end: 20121121
  33. TERBINAFINE [Concomitant]
     Route: 065
     Dates: start: 20121030

REACTIONS (1)
  - Left ventricular dysfunction [Recovered/Resolved]
